FAERS Safety Report 18745783 (Version 1)
Quarter: 2021Q1

REPORT INFORMATION
  Report Type: Spontaneous
  Country: US (occurrence: US)
  Receive Date: 20210115
  Receipt Date: 20210115
  Transmission Date: 20210419
  Serious: No
  Sender: FDA-Public Use
  Company Number: US-MYLANLABS-2021M1000712

PATIENT
  Sex: Female

DRUGS (2)
  1. FENTANYL TRANSDERMAL SYSTEM [Suspect]
     Active Substance: FENTANYL
     Indication: COMPLEX REGIONAL PAIN SYNDROME
     Dosage: ONE PATCH EVERY 72 HRS
     Route: 062
  2. FENTANYL TRANSDERMAL SYSTEM [Suspect]
     Active Substance: FENTANYL
     Dosage: ONE PATCH EVERY 72 HRS
     Route: 062

REACTIONS (4)
  - Drug ineffective [Recovered/Resolved]
  - Product adhesion issue [Recovered/Resolved]
  - Weight decreased [Not Recovered/Not Resolved]
  - Withdrawal syndrome [Recovered/Resolved]
